FAERS Safety Report 9131055 (Version 1)
Quarter: 2013Q1

REPORT INFORMATION
  Report Type: Spontaneous
  Country: US (occurrence: US)
  Receive Date: 20130301
  Receipt Date: 20130301
  Transmission Date: 20140127
  Serious: Yes (Death)
  Sender: FDA-Public Use
  Company Number: US-COVIDIEN/TYCO HEALTHCARE/MALLINCKRODT-T201300899

PATIENT
  Sex: Male

DRUGS (3)
  1. GABLOFEN [Suspect]
     Indication: MUSCLE SPASTICITY
     Dosage: 149.89 MCG/DAY
     Route: 037
  2. GABLOFEN [Suspect]
     Indication: FRIEDREICH^S ATAXIA
  3. MORPHINE [Suspect]

REACTIONS (1)
  - Muscular dystrophy [Fatal]
